FAERS Safety Report 7861129-9 (Version None)
Quarter: 2011Q4

REPORT INFORMATION
  Report Type: 
  Country: None (occurrence: None)
  Receive Date: 20111027
  Receipt Date: 20111018
  Transmission Date: 20120403
  Serious: Yes (Hospitalization)
  Sender: FDA-Public Use
  Company Number: US-JNJFOC-20110910271

PATIENT
  Sex: Male
  Weight: 52 kg

DRUGS (10)
  1. REMICADE [Suspect]
     Route: 042
     Dates: start: 20110909
  2. FERROUS SULFATE TAB [Concomitant]
  3. MERCAPTOPURINE [Concomitant]
  4. PROBIOTICS [Concomitant]
  5. CALCIUM CARBONATE [Concomitant]
  6. IRON DEXTRAN [Concomitant]
  7. REMICADE [Suspect]
     Indication: CROHN'S DISEASE
     Dosage: COMPLETED LOADING DOSES TIMES 3
     Route: 042
     Dates: start: 20110729
  8. MESALAMINE [Concomitant]
  9. VITAMIN D [Concomitant]
  10. MULTI-VITAMINS [Concomitant]

REACTIONS (1)
  - SMALL INTESTINAL OBSTRUCTION [None]
